FAERS Safety Report 18960504 (Version 5)
Quarter: 2022Q2

REPORT INFORMATION
  Report Type: Spontaneous
  Country: CA (occurrence: CA)
  Receive Date: 20210302
  Receipt Date: 20220602
  Transmission Date: 20220721
  Serious: Yes (Other)
  Sender: FDA-Public Use
  Company Number: CA-PFIZER INC-2021204553

PATIENT
  Age: 59 Year
  Sex: Female
  Weight: 89 kg

DRUGS (6)
  1. XELJANZ [Suspect]
     Active Substance: TOFACITINIB CITRATE
     Indication: Psoriatic arthropathy
     Dosage: 5 MG, 2X/DAY
     Route: 048
     Dates: start: 202101
  2. XELJANZ [Suspect]
     Active Substance: TOFACITINIB CITRATE
     Dosage: 5 MG, 2X/DAY
     Route: 048
     Dates: start: 20210212
  3. CALCIUM [Concomitant]
     Active Substance: CALCIUM
     Dosage: UNK
  4. NAPROXEN [Concomitant]
     Active Substance: NAPROXEN
     Indication: Back pain
     Dosage: UNK, AS NEEDED (PRN)
  5. SYNTHROID [Concomitant]
     Active Substance: LEVOTHYROXINE SODIUM
     Dosage: 1 DF 0.175 MCG
     Route: 065
  6. SYNTHROID [Concomitant]
     Active Substance: LEVOTHYROXINE SODIUM
     Dosage: 1 DF 0.150 MCG
     Route: 065

REACTIONS (18)
  - Colitis ulcerative [Unknown]
  - Drug ineffective [Unknown]
  - Back pain [Unknown]
  - C-reactive protein increased [Unknown]
  - Diarrhoea [Not Recovered/Not Resolved]
  - Headache [Recovering/Resolving]
  - Muscle spasms [Recovered/Resolved]
  - Greater trochanteric pain syndrome [Unknown]
  - Spinal pain [Unknown]
  - Inflammation [Unknown]
  - Musculoskeletal stiffness [Unknown]
  - Rash [Not Recovered/Not Resolved]
  - Synovial cyst [Unknown]
  - Cartilage injury [Unknown]
  - Aphthous ulcer [Unknown]
  - Tendon disorder [Unknown]
  - Tendon rupture [Unknown]
  - Lymphadenopathy [Unknown]

NARRATIVE: CASE EVENT DATE: 20210201
